FAERS Safety Report 5519679-6 (Version None)
Quarter: 2007Q4

REPORT INFORMATION
  Report Type: 
  Country: None (occurrence: None)
  Receive Date: 20071116
  Receipt Date: 20071109
  Transmission Date: 20080405
  Serious: Yes (Other)
  Sender: FDA-Public Use
  Company Number: US-JNJFOC-20071105122

PATIENT
  Age: 49 Year
  Sex: Male
  Weight: 75.3 kg

DRUGS (2)
  1. LEVAQUIN [Suspect]
     Route: 042
  2. LEVAQUIN [Suspect]
     Indication: DRUG USE FOR UNKNOWN INDICATION
     Route: 042

REACTIONS (1)
  - BLOOD BILIRUBIN INCREASED [None]
